FAERS Safety Report 22187458 (Version 3)
Quarter: 2023Q2

REPORT INFORMATION
  Report Type: Spontaneous
  Country: US (occurrence: US)
  Receive Date: 20230407
  Receipt Date: 20230413
  Transmission Date: 20230721
  Serious: Yes (Other)
  Sender: FDA-Public Use
  Company Number: US-PFIZER INC-202300145980

PATIENT
  Age: 64 Year
  Sex: Female
  Weight: 72.57 kg

DRUGS (3)
  1. PAXLOVID [Suspect]
     Active Substance: NIRMATRELVIR\RITONAVIR
     Indication: COVID-19 treatment
     Dosage: 3 DF, 2X/DAY (300MG/100MG DOSE PACK)
     Route: 048
     Dates: start: 20230404, end: 20230408
  2. PROPRANOLOL [Concomitant]
     Active Substance: PROPRANOLOL HYDROCHLORIDE
     Indication: Hypertension
     Dosage: 40 MG, 2X/DAY (TAKING FOR YEARS)
     Route: 048
  3. BUSPIRONE [Concomitant]
     Active Substance: BUSPIRONE HYDROCHLORIDE
     Indication: Anxiety
     Dosage: 15 MG, 2X/DAY
     Route: 048

REACTIONS (8)
  - Dysgeusia [Recovering/Resolving]
  - Dry mouth [Recovered/Resolved]
  - Thirst [Recovered/Resolved]
  - Tongue dry [Recovered/Resolved]
  - Abnormal dreams [Unknown]
  - Middle insomnia [Unknown]
  - Conversion disorder [Unknown]
  - Therapeutic product effect incomplete [Unknown]

NARRATIVE: CASE EVENT DATE: 20230404
